FAERS Safety Report 23920325 (Version 1)
Quarter: 2024Q2

REPORT INFORMATION
  Report Type: Spontaneous
  Country: US (occurrence: US)
  Receive Date: 20240530
  Receipt Date: 20240530
  Transmission Date: 20240716
  Serious: Yes (Other)
  Sender: FDA-Public Use
  Company Number: US-CIPLA LTD.-2024US05094

PATIENT

DRUGS (11)
  1. GABAPENTIN [Suspect]
     Active Substance: GABAPENTIN
     Indication: Skin ulcer
     Dosage: 200 MILLIGRAM, QD (CREAM)
     Route: 065
  2. PENTOXIFYLLINE [Suspect]
     Active Substance: PENTOXIFYLLINE
     Indication: Skin ulcer
     Dosage: 800 MILLIGRAM, TID (TIME INTERVAL: 0.3333333 DAYS, THREE TIMES A DAY)
     Route: 065
  3. PENTOXIFYLLINE [Suspect]
     Active Substance: PENTOXIFYLLINE
     Dosage: 400 MILLIGRAM, TID (TIME INTERVAL: 0.3333333 DAYS, THREE TIMES A DAY)
     Route: 065
  4. GENTAMICIN [Suspect]
     Active Substance: GENTAMICIN
     Indication: Skin ulcer
     Dosage: UNK
     Route: 065
  5. TRIAMCINOLONE [Suspect]
     Active Substance: TRIAMCINOLONE
     Indication: Skin ulcer
     Dosage: UNK
     Route: 061
  6. MINOCYCLINE [Suspect]
     Active Substance: MINOCYCLINE HYDROCHLORIDE
     Indication: Skin ulcer
     Dosage: 100 MILLIGRAM, BID (0.5 DAY)
     Route: 065
  7. CIPROFLOXACIN [Suspect]
     Active Substance: CIPROFLOXACIN
     Indication: Skin ulcer
     Dosage: 500 MILLIGRAM, BID (0.5 DAY)
     Route: 065
  8. NYSTATIN [Suspect]
     Active Substance: NYSTATIN
     Indication: Skin ulcer
     Dosage: UNK
     Route: 061
  9. ACITRETIN [Suspect]
     Active Substance: ACITRETIN
     Indication: Skin ulcer
     Dosage: 10 MILLIGRAM, QD
     Route: 065
  10. MUPIROCIN [Suspect]
     Active Substance: MUPIROCIN
     Indication: Skin ulcer
     Dosage: UNK
     Route: 065
  11. FLUCONAZOLE [Suspect]
     Active Substance: FLUCONAZOLE
     Indication: Skin ulcer
     Dosage: 150 MILLIGRAM, QD
     Route: 048

REACTIONS (2)
  - Drug ineffective [Unknown]
  - Off label use [Unknown]
